FAERS Safety Report 8817709 (Version 1)
Quarter: 2012Q4

REPORT INFORMATION
  Report Type: 
  Country: US (occurrence: US)
  Receive Date: 20121001
  Receipt Date: 20121001
  Transmission Date: 20130627
  Serious: No
  Sender: FDA-Public Use
  Company Number: US-PFIZER INC-2012241924

PATIENT
  Age: 54 Year
  Sex: Female
  Weight: 64.4 kg

DRUGS (6)
  1. CHANTIX [Suspect]
     Indication: SMOKING CESSATION THERAPY
     Dosage: 1 mg, 2x/day
     Route: 048
     Dates: start: 201209, end: 201209
  2. TRAZODONE [Concomitant]
     Dosage: UNK
  3. VISTARIL [Concomitant]
     Dosage: UNK
  4. GEODON [Concomitant]
     Dosage: UNK
  5. LIPITOR [Concomitant]
     Dosage: UNK
  6. PLAVIX [Concomitant]
     Indication: ANTICOAGULANT THERAPY
     Dosage: UNK, daily

REACTIONS (1)
  - Drug ineffective [Unknown]
